FAERS Safety Report 5774113-6 (Version None)
Quarter: 2008Q2

REPORT INFORMATION
  Report Type: 
  Country: None (occurrence: None)
  Receive Date: 20080616
  Receipt Date: 20080609
  Transmission Date: 20081010
  Serious: Yes (Other)
  Sender: FDA-Public Use
  Company Number: US-MERCK-0310USA00013

PATIENT
  Age: 12 Year
  Sex: Male
  Weight: 48 kg

DRUGS (7)
  1. SINGULAIR [Suspect]
     Indication: BRONCHIAL HYPERREACTIVITY
     Route: 048
     Dates: start: 19980401, end: 19980501
  2. SINGULAIR [Suspect]
     Route: 048
     Dates: start: 20000801, end: 20000901
  3. RHINOCORT [Concomitant]
     Route: 065
  4. ALBUTEROL [Concomitant]
  5. ASTELIN [Concomitant]
  6. ALLERGENIC EXTRACT [Concomitant]
     Route: 051
  7. ADVAIR DISKUS 100/50 [Concomitant]
     Route: 065

REACTIONS (7)
  - DEPRESSED MOOD [None]
  - DEPRESSION [None]
  - HALLUCINATION [None]
  - INCOHERENT [None]
  - PSYCHOMOTOR HYPERACTIVITY [None]
  - REFUSAL OF TREATMENT BY RELATIVE [None]
  - SUICIDAL IDEATION [None]
